FAERS Safety Report 7565545-4 (Version None)
Quarter: 2011Q2

REPORT INFORMATION
  Report Type: 
  Country: None (occurrence: None)
  Receive Date: 20110623
  Receipt Date: 20110615
  Transmission Date: 20111010
  Serious: Yes (Other)
  Sender: FDA-Public Use
  Company Number: US-SHIRE-ALL1-2011-01891

PATIENT
  Age: 16 Year
  Sex: Male

DRUGS (2)
  1. VYVANSE [Suspect]
     Dosage: UNK UNK, UNKNOWN
     Route: 048
     Dates: end: 20110101
  2. VYVANSE [Suspect]
     Indication: ATTENTION DEFICIT/HYPERACTIVITY DISORDER
     Dosage: 50 MG, 1X/DAY:QD
     Route: 048
     Dates: start: 20110101, end: 20110601

REACTIONS (1)
  - VIOLENCE-RELATED SYMPTOM [None]
